FAERS Safety Report 23506400 (Version 2)
Quarter: 2024Q1

REPORT INFORMATION
  Report Type: Report from Study
  Country: JP (occurrence: JP)
  Receive Date: 20240209
  Receipt Date: 20240213
  Transmission Date: 20240410
  Serious: Yes (Hospitalization, Other)
  Sender: FDA-Public Use
  Company Number: JP-002147023-NVSJ2024JP001827

PATIENT
  Age: 43 Year
  Sex: Male
  Weight: 77 kg

DRUGS (3)
  1. TAFINLAR [Suspect]
     Active Substance: DABRAFENIB MESYLATE
     Indication: Malignant nervous system neoplasm
     Dosage: 300 MG
     Route: 048
     Dates: start: 20210608, end: 20240202
  2. MEKINIST [Suspect]
     Active Substance: TRAMETINIB DIMETHYL SULFOXIDE
     Indication: Malignant nervous system neoplasm
     Dosage: 2 MG
     Route: 048
     Dates: start: 20210608, end: 20240202
  3. DESMOPRESSIN ACETATE [Suspect]
     Active Substance: DESMOPRESSIN ACETATE
     Indication: Diabetes insipidus
     Dosage: UNK
     Route: 048
     Dates: start: 20230509

REACTIONS (6)
  - Hypernatraemia [Not Recovered/Not Resolved]
  - Adrenal insufficiency [Unknown]
  - Diabetes insipidus [Unknown]
  - Dehydration [Unknown]
  - Central hypothyroidism [Unknown]
  - Pyrexia [Unknown]

NARRATIVE: CASE EVENT DATE: 20240202
